FAERS Safety Report 15164711 (Version 1)
Quarter: 2018Q3

REPORT INFORMATION
  Report Type: Spontaneous
  Country: US (occurrence: US)
  Receive Date: 20180719
  Receipt Date: 20180719
  Transmission Date: 20181010
  Serious: No
  Sender: FDA-Public Use
  Company Number: US-SA-2018SA188591

PATIENT
  Age: 39 Year
  Sex: Male

DRUGS (5)
  1. TYLENOL [Concomitant]
     Active Substance: ACETAMINOPHEN
  2. FABRAZYME [Suspect]
     Active Substance: AGALSIDASE BETA
     Indication: FABRY^S DISEASE
     Dosage: 0.98 UNK
     Route: 041
     Dates: start: 20180302
  3. FABRAZYME [Suspect]
     Active Substance: AGALSIDASE BETA
     Dosage: 0.98 UNK
     Route: 041
     Dates: start: 2017, end: 201710
  4. FABRAZYME [Suspect]
     Active Substance: AGALSIDASE BETA
     Dosage: 0.98 MG/KG, QOW
     Route: 041
     Dates: start: 20090713, end: 2017
  5. BENADRYL [Concomitant]
     Active Substance: DIPHENHYDRAMINE HYDROCHLORIDE

REACTIONS (3)
  - Lip swelling [Unknown]
  - Pruritus [Unknown]
  - Urticaria [Unknown]

NARRATIVE: CASE EVENT DATE: 20180302
